FAERS Safety Report 4769905-6 (Version None)
Quarter: 2005Q3

REPORT INFORMATION
  Report Type: 
  Country: None (occurrence: None)
  Receive Date: 20050912
  Receipt Date: 20050518
  Transmission Date: 20060218
  Serious: Yes (Other)
  Sender: FDA-Public Use
  Company Number: 2004AP000790

PATIENT
  Age: 57 Year
  Sex: Female
  Weight: 58.0604 kg

DRUGS (3)
  1. PAROXETINE HCL [Suspect]
     Indication: SOCIAL PHOBIA
     Dosage: 30 MG; QD; PO
     Route: 048
     Dates: start: 20010101, end: 20041001
  2. GLUCOSAMINE W/ CHONDROITIN [Concomitant]
  3. PREVACID [Concomitant]

REACTIONS (1)
  - ARTHRALGIA [None]
